FAERS Safety Report 24453945 (Version 2)
Quarter: 2024Q4

REPORT INFORMATION
  Report Type: Report from Study
  Country: GB (occurrence: GB)
  Receive Date: 20241017
  Receipt Date: 20241018
  Transmission Date: 20250114
  Serious: No
  Sender: ROCHE
  Company Number: GB-ROCHE-3461718

PATIENT

DRUGS (5)
  1. RITUXIMAB [Suspect]
     Active Substance: RITUXIMAB
     Indication: Glomerulonephritis
     Route: 065
  2. CYCLOPHOSPHAMIDE [Suspect]
     Active Substance: CYCLOPHOSPHAMIDE
     Indication: Glomerulonephritis
     Dosage: LOW-DOSE,MEDIAN DOSE 2.2G
     Route: 042
  3. METHYLPREDNISOLONE [Suspect]
     Active Substance: METHYLPREDNISOLONE
     Indication: Glomerulonephritis
     Dosage: 0MG (0-500)
     Route: 042
  4. PREDNISOLONE [Suspect]
     Active Substance: PREDNISOLONE
     Indication: Glomerulonephritis
     Dosage: MEDIAN DOSE AND DURATION OF 270MG (210-420) AND 8 DAYS (7-16),
     Route: 048
  5. AVACOPAN [Suspect]
     Active Substance: AVACOPAN
     Indication: Glomerulonephritis
     Route: 065

REACTIONS (3)
  - Urinary tract infection [Unknown]
  - Lower respiratory tract infection [Unknown]
  - Hypertransaminasaemia [Unknown]
